FAERS Safety Report 12257088 (Version 1)
Quarter: 2016Q2

REPORT INFORMATION
  Report Type: Spontaneous
  Country: DE (occurrence: DE)
  Receive Date: 20160412
  Receipt Date: 20160412
  Transmission Date: 20160815
  Serious: Yes (Hospitalization)
  Sender: FDA-Public Use
  Company Number: DE-MYLANLABS-2016M1015052

PATIENT

DRUGS (1)
  1. CARBAMAZEPINE. [Suspect]
     Active Substance: CARBAMAZEPINE
     Indication: PRODUCT USED FOR UNKNOWN INDICATION
     Dosage: INGESTED IN SUM OF 10 TABLETS OF CARBAMAZEPINE FOR THE CURRENT AND PREVIOUS DAY
     Route: 048

REACTIONS (2)
  - Cerebellar syndrome [Unknown]
  - Overdose [Unknown]
